FAERS Safety Report 9341665 (Version 4)
Quarter: 2013Q3

REPORT INFORMATION
  Report Type: Spontaneous
  Country: US (occurrence: US)
  Receive Date: 20130611
  Receipt Date: 20130926
  Transmission Date: 20140515
  Serious: Yes (Hospitalization, Other)
  Sender: FDA-Public Use
  Company Number: US-PFIZER INC-2013172828

PATIENT
  Age: 80 Year
  Sex: Male
  Weight: 118 kg

DRUGS (33)
  1. SUTENT [Suspect]
     Indication: RENAL CELL CARCINOMA
     Dosage: 50 MG DAILY, CYCLIC
     Dates: start: 20130506, end: 20130521
  2. SUTENT [Suspect]
     Dosage: 50 MG DAILY, CYCLIC
     Dates: start: 20130530, end: 20130610
  3. GLIMEPIRIDE [Concomitant]
     Indication: DIABETES MELLITUS
     Dosage: 4 MG, 2X/DAY
  4. LEVEMIR FLEXPEN [Concomitant]
     Indication: DIABETES MELLITUS
     Dosage: 50UNITS IN THE MORNING AND 30UNITS AT NIGHT (2X/DAY)
  5. LOSARTAN [Concomitant]
     Indication: HYPERTENSION
     Dosage: 50 MG, 1X/DAY
  6. CARVEDILOL [Concomitant]
     Indication: HYPERTENSION
     Dosage: 12.5 MG, 1X/DAY
  7. LEVOTHYROXINE [Concomitant]
     Indication: HYPOTHYROIDISM
     Dosage: 50 UG, 1X/DAY
  8. FOLIC ACID [Concomitant]
     Indication: VITAMIN SUPPLEMENTATION
     Dosage: 1 G, 2X/DAY
     Dates: end: 20130610
  9. DOXYCYCLINE [Concomitant]
     Indication: ANTI-INFECTIVE THERAPY
     Dosage: 100 MG, 1X/DAY
     Dates: end: 20130610
  10. FLUCONAZOLE [Concomitant]
     Indication: ORAL FUNGAL INFECTION
     Dosage: 200 MG, 1X/DAY
  11. SPIRONOLACTONE [Concomitant]
     Indication: DIURETIC THERAPY
     Dosage: 50 MG, 1X/DAY
  12. ASPIRIN [Concomitant]
     Indication: ARTERIAL OCCLUSIVE DISEASE
     Dosage: 81 MG, 1X/DAY
  13. SIMVASTATIN [Concomitant]
     Indication: BLOOD CHOLESTEROL INCREASED
     Dosage: 50 MG, 1X/DAY
     Dates: end: 20130610
  14. ISOSORBIDE [Concomitant]
     Indication: BLOOD CHOLESTEROL INCREASED
     Dosage: 20 MG, 1X/DAY
  15. CLOPIDOGREL [Concomitant]
     Indication: ARTERIAL OCCLUSIVE DISEASE
     Dosage: 75 MG, 1X/DAY
  16. MEPRON [Concomitant]
     Indication: GOUT
     Dosage: 500 MG, 2X/DAY
  17. VITAMIN D3 [Concomitant]
     Dosage: 2000 IU, 1X/DAY
  18. VITAMIN E [Concomitant]
     Dosage: 400 IU, 1X/DAY
  19. DOXAZOSIN [Concomitant]
     Indication: PROSTATIC DISORDER
     Dosage: 8 MG, 1X/DAY
     Dates: end: 20130610
  20. ENABLEX [Concomitant]
     Indication: HYPERTONIC BLADDER
     Dosage: 50 MG, 1X/DAY
  21. VITAMIN D [Concomitant]
     Dosage: UNK
  22. AMARYL [Concomitant]
     Dosage: UNK
  23. COREG [Concomitant]
     Dosage: UNK
  24. DOCUSATE [Concomitant]
     Dosage: UNK
  25. ACETYLSALICYLIC ACID [Concomitant]
     Dosage: UNK
  26. PLAVIX [Concomitant]
     Dosage: UNK
  27. INSULIN DETEMIR [Concomitant]
     Dosage: UNK
  28. VENTOLIN [Concomitant]
     Dosage: UNK
     Dates: end: 20130610
  29. DIFLUCAN [Concomitant]
     Dosage: UNK
     Dates: end: 20130610
  30. NAPROXEN [Concomitant]
     Dosage: UNK
     Dates: end: 20130610
  31. BENADRYL [Concomitant]
     Dosage: UNK
     Dates: end: 20130610
  32. NITROGLYCERIN [Concomitant]
     Dosage: UNK
     Dates: end: 20130610
  33. DEXYLANT [Concomitant]
     Dosage: UNK
     Dates: end: 20130610

REACTIONS (22)
  - Dyspnoea [Unknown]
  - Dysarthria [Unknown]
  - Haematochezia [Unknown]
  - Cerebrovascular accident [Unknown]
  - Carotid artery occlusion [Recovering/Resolving]
  - Rectal haemorrhage [Unknown]
  - Asthenia [Unknown]
  - Lumbosacral plexus injury [Unknown]
  - Constipation [Unknown]
  - Fall [Unknown]
  - Pain [Unknown]
  - Hypoaesthesia [Unknown]
  - Blood pressure decreased [Unknown]
  - Fungal infection [Unknown]
  - Back pain [Unknown]
  - Pain in extremity [Unknown]
  - Intervertebral disc degeneration [Unknown]
  - Arthritis [Unknown]
  - Dysgeusia [Unknown]
  - Decreased appetite [Unknown]
  - Disease progression [Unknown]
  - Renal cell carcinoma [Unknown]
